FAERS Safety Report 21543346 (Version 1)
Quarter: 2022Q4

REPORT INFORMATION
  Report Type: Spontaneous
  Country: DE (occurrence: DE)
  Receive Date: 20221102
  Receipt Date: 20221102
  Transmission Date: 20230113
  Serious: Yes (Hospitalization)
  Sender: FDA-Public Use
  Company Number: DE-ADRED-05735-01

PATIENT
  Age: 81 Year
  Sex: Male

DRUGS (5)
  1. LERCANIDIPINE [Suspect]
     Active Substance: LERCANIDIPINE
     Indication: Product used for unknown indication
     Dosage: 10 MG, 1-0-0-0, TABLET
     Route: 048
  2. CANDESARTAN CILEXETIL\HYDROCHLOROTHIAZIDE [Suspect]
     Active Substance: CANDESARTAN CILEXETIL\HYDROCHLOROTHIAZIDE
     Indication: Product used for unknown indication
     Dosage: 32|25 MG, 1-0-0-0, TABLET
     Route: 048
  3. NEPAFENAC [Suspect]
     Active Substance: NEPAFENAC
     Indication: Product used for unknown indication
     Dosage: 1 DROP 1-0-1-0,DROP
  4. PREDNISOLONE [Concomitant]
     Active Substance: PREDNISOLONE
     Dosage: 1 DROP, 1-0-1-0, DROP
  5. BETAHISTINE [Concomitant]
     Active Substance: BETAHISTINE
     Dosage: 12 MG, 1-0-0-0, TABLET
     Route: 048

REACTIONS (4)
  - Dehydration [Recovering/Resolving]
  - Anaemia [Recovering/Resolving]
  - Acute kidney injury [Recovering/Resolving]
  - Renal impairment [Recovering/Resolving]
